FAERS Safety Report 15375566 (Version 9)
Quarter: 2019Q1

REPORT INFORMATION
  Report Type: Spontaneous
  Country: ES (occurrence: ES)
  Receive Date: 20180912
  Receipt Date: 20190208
  Transmission Date: 20190417
  Serious: Yes (Other)
  Sender: FDA-Public Use
  Company Number: IND-ES-009507513-1809ESP001881

PATIENT
  Age: 23 Year
  Sex: Male

DRUGS (14)
  1. OMEPRAZOLE. [Concomitant]
     Active Substance: OMEPRAZOLE
     Dosage: DOSAGE FORM: UNSPECIFIED
     Route: 065
  2. ENBREL [Suspect]
     Active Substance: ETANERCEPT
     Indication: PSORIATIC ARTHROPATHY
     Dosage: DOSAGE FORM: UNSPECIFIED
     Route: 065
     Dates: start: 201212
  3. ENBREL [Suspect]
     Active Substance: ETANERCEPT
     Indication: PSORIATIC ARTHROPATHY
     Dosage: UNK
     Dates: end: 201212
  4. ACOXXEL 90 MG COMPRIMIDOS RECUBIERTOS CON PEL?CULA [Suspect]
     Active Substance: ETORICOXIB
     Dosage: 270 MG, WEEKLY (90 MG, THREE TIMES PER WEEK)
     Route: 048
     Dates: start: 20141010
  5. ARCOXIA [Suspect]
     Active Substance: ETORICOXIB
     Dosage: 270 MG, WEEKLY (90 MG, THREE TIMES PER WEEK)
     Route: 048
     Dates: start: 20141010
  6. ACOXXEL 90 MG COMPRIMIDOS RECUBIERTOS CON PEL?CULA [Suspect]
     Active Substance: ETORICOXIB
     Dosage: 90 MG, ALTERNATE DAY (EVERY 48 HOURS)
     Route: 048
     Dates: start: 201312, end: 20140227
  7. SIMPONI [Suspect]
     Active Substance: GOLIMUMAB
     Indication: PSORIATIC ARTHROPATHY
     Dosage: 50 MG, MONTHLY
     Dates: start: 2013
  8. SIMPONI [Suspect]
     Active Substance: GOLIMUMAB
     Dosage: 50MG /MONTHLY
     Route: 058
     Dates: start: 20121218, end: 20130106
  9. ENBREL [Suspect]
     Active Substance: ETANERCEPT
     Dosage: UNK
     Dates: end: 201212
  10. ACOXXEL 90 MG COMPRIMIDOS RECUBIERTOS CON PEL?CULA [Suspect]
     Active Substance: ETORICOXIB
     Dosage: 90 MG, ALTERNATE DAY(EVERY 48 HOURS)
     Route: 048
     Dates: start: 201312, end: 20141010
  11. ARCOXIA [Suspect]
     Active Substance: ETORICOXIB
     Dosage: 90 MG, ALTERNATE DAY(EVERY 48 HOURS)
     Route: 048
     Dates: start: 201312, end: 20141010
  12. ACOXXEL 90 MG COMPRIMIDOS RECUBIERTOS CON PEL?CULA [Suspect]
     Active Substance: ETORICOXIB
     Dosage: 90 MG, 1X/DAY
     Route: 048
     Dates: start: 20121218, end: 201307
  13. ARCOXIA [Suspect]
     Active Substance: ETORICOXIB
     Dosage: 90 MG, 1X/DAY
     Route: 048
     Dates: end: 201307
  14. DACORTIN [Suspect]
     Active Substance: PREDNISONE
     Indication: PSORIATIC ARTHROPATHY
     Dosage: 10 MG, 1X/DAY
     Route: 065
     Dates: start: 20121218

REACTIONS (25)
  - Tenosynovitis [Recovered/Resolved]
  - Joint dislocation [Unknown]
  - Arthralgia [Unknown]
  - Inappropriate schedule of product administration [Unknown]
  - Condition aggravated [Recovered/Resolved]
  - Myofascial pain syndrome [Recovered/Resolved]
  - Asthenia [Recovered/Resolved]
  - Sacroiliitis [Recovered/Resolved]
  - Aspartate aminotransferase increased [Unknown]
  - Drug ineffective [Recovered/Resolved]
  - Plantar fasciitis [Unknown]
  - Arthropathy [Recovered/Resolved]
  - Product use in unapproved indication [Unknown]
  - Psoriasis [Recovered/Resolved]
  - Gastroenteritis [Recovered/Resolved]
  - Metabolic syndrome [Unknown]
  - Prerenal failure [Recovered/Resolved]
  - Gastroenteritis bacterial [Recovered/Resolved]
  - Tenosynovitis [Recovered/Resolved]
  - Anxiety [Unknown]
  - Off label use [Unknown]
  - Neck pain [Unknown]
  - Spinal disorder [Unknown]
  - Bone erosion [Recovering/Resolving]
  - Drug ineffective for unapproved indication [Recovered/Resolved]

NARRATIVE: CASE EVENT DATE: 2012
